FAERS Safety Report 19784030 (Version 1)
Quarter: 2021Q3

REPORT INFORMATION
  Report Type: Spontaneous
  Country: ES (occurrence: ES)
  Receive Date: 20210903
  Receipt Date: 20210903
  Transmission Date: 20211014
  Serious: Yes (Hospitalization, Other)
  Sender: FDA-Public Use
  Company Number: ES-AUROBINDO-AUR-APL-2021-037598

PATIENT
  Age: 76 Year
  Sex: Female

DRUGS (19)
  1. DIPRODERM (BETAMETHASONE DIPROPIONATE) [Suspect]
     Active Substance: BETAMETHASONE DIPROPIONATE
     Dosage: UNK
     Route: 061
     Dates: start: 20191213
  2. DOXYCYCLINE. [Concomitant]
     Active Substance: DOXYCYCLINE
     Indication: DERMATITIS ACNEIFORM
     Dosage: 100 MILLIGRAM, ONCE A DAY(100 MG, QD)
     Route: 048
     Dates: start: 20191213
  3. ENOXAPARIN [Concomitant]
     Active Substance: ENOXAPARIN
     Indication: PRODUCT USED FOR UNKNOWN INDICATION
     Dosage: UNK
     Route: 065
  4. HALOPERIDOL. [Concomitant]
     Active Substance: HALOPERIDOL
     Indication: PRODUCT USED FOR UNKNOWN INDICATION
     Dosage: 2 MILLIGRAM, ONCE A DAY(2 MG, QD)
     Route: 048
     Dates: start: 20200111
  5. PRIMPERAN [Concomitant]
     Active Substance: METOCLOPRAMIDE HYDROCHLORIDE
     Indication: VOMITING
     Dosage: 10 MILLIGRAM, ONCE A DAY(10 MG, QD)
     Route: 042
     Dates: start: 20191212
  6. GLUCOSE [Concomitant]
     Active Substance: DEXTROSE
     Indication: PRODUCT USED FOR UNKNOWN INDICATION
     Dosage: UNK
     Route: 065
  7. HYDROCHLOROTHIAZIDE. [Suspect]
     Active Substance: HYDROCHLOROTHIAZIDE
     Indication: PRODUCT USED FOR UNKNOWN INDICATION
     Dosage: UNK
     Route: 065
  8. OMEPRAZOLE. [Suspect]
     Active Substance: OMEPRAZOLE
     Dosage: 20 MILLIGRAM, ONCE A DAY(20 MG, QD)
     Route: 048
     Dates: start: 20191223
  9. DEXAMETHASONE. [Concomitant]
     Active Substance: DEXAMETHASONE
     Indication: PRODUCT USED FOR UNKNOWN INDICATION
     Dosage: 4 MILLIGRAM, ONCE A DAY(4 MG, QD)
     Route: 048
     Dates: start: 20200111
  10. LOPERAMIDE [Concomitant]
     Active Substance: LOPERAMIDE
     Indication: PRODUCT USED FOR UNKNOWN INDICATION
     Dosage: 20 MILLIGRAM, ONCE A DAY(20 MG, QD)
     Route: 048
     Dates: start: 20191230
  11. ONDANSETRON [Concomitant]
     Active Substance: ONDANSETRON
     Indication: PRODUCT USED FOR UNKNOWN INDICATION
     Dosage: 4 MILLIGRAM, ONCE A DAY(4 MG, QD)
     Route: 048
     Dates: start: 20191230
  12. ZYLORIC [Concomitant]
     Active Substance: ALLOPURINOL
     Indication: HYPERURICAEMIA
     Dosage: 100 MILLIGRAM, ONCE A DAY(100 MG, QD)
     Route: 048
     Dates: start: 201909
  13. FLUTICREM (FLUTICASONE PROPIONATE) [Suspect]
     Active Substance: FLUTICASONE PROPIONATE
     Indication: DERMATITIS ACNEIFORM
     Dosage: 1 MILLIGRAM, ONCE A DAY(0.5 MG, BID)
     Route: 061
     Dates: start: 20191223
  14. HYDROCHLOROTHIAZIDE;OLMESARTAN MEDOXOMIL [Concomitant]
     Active Substance: HYDROCHLOROTHIAZIDE\OLMESARTAN MEDOXOMIL
     Indication: HYPERTENSION
     Dosage: 40 MILLIGRAM, ONCE A DAY(40 MG, QD)
     Route: 048
     Dates: start: 201908
  15. MAGNOGENE [Concomitant]
     Indication: PRODUCT USED FOR UNKNOWN INDICATION
     Dosage: 1 DOSAGE FORM, ONCE A DAY(1 DF, QD)
     Route: 048
     Dates: start: 201904
  16. EUTIROX [Concomitant]
     Active Substance: LEVOTHYROXINE SODIUM
     Indication: HYPOTHYROIDISM
     Dosage: 75 MILLIGRAM, ONCE A DAY(75 MG, QD)
     Route: 048
     Dates: start: 2009
  17. NOLOTIL [Concomitant]
     Indication: GASTROINTESTINAL TOXICITY
     Dosage: 6 GRAM, ONCE A DAY(2 G, TID)
     Route: 042
     Dates: start: 20191209
  18. PYRIDOXINE HYDROCHLORIDE;THIAMINE HYDROCHLORIDE [Concomitant]
     Indication: PRODUCT USED FOR UNKNOWN INDICATION
     Dosage: 1 DOSAGE FORM, ONCE A DAY(1 DF, QD)
     Route: 048
     Dates: start: 201901
  19. OMEPRAZOLE. [Suspect]
     Active Substance: OMEPRAZOLE
     Indication: PRODUCT USED FOR UNKNOWN INDICATION
     Dosage: 20 MILLIGRAM, ONCE A DAY(20 MG, QD)
     Route: 042
     Dates: start: 20191213

REACTIONS (1)
  - Renal failure [Recovered/Resolved]

NARRATIVE: CASE EVENT DATE: 20200114
